FAERS Safety Report 20891412 (Version 3)
Quarter: 2022Q3

REPORT INFORMATION
  Report Type: Report from Study
  Country: CN (occurrence: CN)
  Receive Date: 20220530
  Receipt Date: 20220713
  Transmission Date: 20221027
  Serious: Yes (Death, Life-Threatening, Hospitalization)
  Sender: FDA-Public Use
  Company Number: CN-GLAXOSMITHKLINE-CN2022GSK085352

PATIENT

DRUGS (24)
  1. NIRAPARIB [Suspect]
     Active Substance: NIRAPARIB
     Indication: Small cell lung cancer
     Dosage: 200 MG, QD
     Route: 048
     Dates: start: 20220301, end: 20220314
  2. NIRAPARIB [Suspect]
     Active Substance: NIRAPARIB
     Dosage: 200 MG, QD
     Route: 048
     Dates: start: 20220328, end: 20220405
  3. NIRAPARIB [Suspect]
     Active Substance: NIRAPARIB
     Dosage: 100 MG, QD
     Route: 048
     Dates: start: 20220412, end: 20220425
  4. CATEQUENTINIB DIHYDROCHLORIDE [Suspect]
     Active Substance: CATEQUENTINIB DIHYDROCHLORIDE
     Indication: Small cell lung cancer
     Dosage: 12 MG, QD
     Route: 048
     Dates: start: 20220301, end: 20220314
  5. CATEQUENTINIB DIHYDROCHLORIDE [Suspect]
     Active Substance: CATEQUENTINIB DIHYDROCHLORIDE
     Dosage: 12 MG, QD
     Route: 048
     Dates: start: 20220325, end: 20220407
  6. CATEQUENTINIB DIHYDROCHLORIDE [Suspect]
     Active Substance: CATEQUENTINIB DIHYDROCHLORIDE
     Dosage: 12 MG, QD
     Route: 048
     Dates: start: 20220413, end: 20220425
  7. AMBROXOL HYDROCHLORIDE [Concomitant]
     Active Substance: AMBROXOL HYDROCHLORIDE
     Indication: Productive cough
     Dosage: 30 MG, BID
     Route: 041
     Dates: start: 20220429, end: 20220509
  8. AMBROXOL HYDROCHLORIDE [Concomitant]
     Active Substance: AMBROXOL HYDROCHLORIDE
     Dosage: 15 MG, QD
     Route: 041
     Dates: start: 20220516, end: 20220524
  9. DOXOFYLLINE [Concomitant]
     Active Substance: DOXOFYLLINE
     Indication: Dyspnoea
     Dosage: 0.2 G, QD
     Route: 041
     Dates: start: 20220429, end: 20220509
  10. DOXOFYLLINE [Concomitant]
     Active Substance: DOXOFYLLINE
     Dosage: 0.2 G, QD
     Route: 041
     Dates: start: 20220516, end: 20220524
  11. HUMAN ALBUMINE [Concomitant]
     Indication: Blood albumin
     Dosage: 50 ML, QD
     Route: 041
     Dates: start: 20220505, end: 20220509
  12. FUROSEMIDE [Concomitant]
     Active Substance: FUROSEMIDE
     Indication: Diuretic therapy
     Dosage: 10 MG, QD
     Route: 042
     Dates: start: 20220505, end: 20220509
  13. FUROSEMIDE [Concomitant]
     Active Substance: FUROSEMIDE
     Dosage: 20 MG, QD
     Route: 042
     Dates: start: 20220516
  14. INOSINE INJECTION [Concomitant]
     Indication: Nutritional supplementation
     Dosage: 800 MG, QD
     Route: 041
     Dates: start: 20220505, end: 20220509
  15. MORPHINE HYDROCHLORIDE TABLET [Concomitant]
     Indication: Pain
     Dosage: 20 MG, QID
     Route: 048
     Dates: start: 20220508, end: 20220520
  16. HERBALS [Concomitant]
     Active Substance: HERBALS
     Indication: Anaemia
     Dosage: 100 MG, QD
     Route: 041
     Dates: start: 20220429, end: 20220509
  17. CEFOTAXIME SODIUM [Concomitant]
     Active Substance: CEFOTAXIME SODIUM
     Indication: Anti-infective therapy
     Dosage: 2 G, BID
     Route: 041
     Dates: start: 20220516, end: 20220520
  18. PROMETHAZINE [Concomitant]
     Active Substance: PROMETHAZINE HYDROCHLORIDE
     Indication: Allergy prophylaxis
     Dosage: 10 MG
     Route: 030
     Dates: start: 20220516
  19. FAMOTIDINE [Concomitant]
     Active Substance: FAMOTIDINE
     Indication: Gastric mucosal lesion
     Dosage: 20 MG, BID
     Route: 041
     Dates: start: 20220517, end: 20220524
  20. BROMHEXINE HYDROCHLORIDE INJECTION [Concomitant]
     Indication: Productive cough
     Dosage: 4 MG, BID
     Route: 041
     Dates: start: 20220518, end: 20220524
  21. THIOCTIC ACID INJECTION [Concomitant]
     Indication: Nervous system disorder prophylaxis
     Dosage: 0.6 G, QD
     Route: 041
     Dates: start: 20220518, end: 20220524
  22. CODEINE PHOSPHATE [Concomitant]
     Active Substance: CODEINE PHOSPHATE
     Indication: Cough
     Dosage: 30 MG, QD
     Route: 048
     Dates: start: 20220519, end: 20220524
  23. BATROXOBIN INJECTION [Concomitant]
     Indication: Haemostasis
     Dosage: 1 DF, QD (1 UNIT)
     Route: 042
     Dates: start: 20220501, end: 20220505
  24. OXYCODONE HYDROCHLORIDE PROLONGED-RELEASE TABLETS [Concomitant]
     Indication: Pain
     Dosage: 20 MG, BID
     Route: 048
     Dates: start: 20220504, end: 20220506

REACTIONS (2)
  - Cardiac tamponade [Fatal]
  - Dyspnoea [Not Recovered/Not Resolved]

NARRATIVE: CASE EVENT DATE: 20220516
